FAERS Safety Report 4962217-7 (Version None)
Quarter: 2006Q2

REPORT INFORMATION
  Report Type: 
  Country: None (occurrence: None)
  Receive Date: 20060403
  Receipt Date: 20060403
  Transmission Date: 20061013
  Serious: Yes (Other)
  Sender: FDA-Public Use
  Company Number: None

PATIENT
  Age: 51 Year
  Sex: Female
  Weight: 68.0396 kg

DRUGS (2)
  1. FOSAMAX [Suspect]
     Indication: OSTEOPENIA
     Dosage: 35MG   WEEKLY   PO
     Route: 048
     Dates: start: 20040305, end: 20060331
  2. FOSAMAX [Suspect]
     Indication: OSTEOPOROSIS
     Dosage: 35MG   WEEKLY   PO
     Route: 048
     Dates: start: 20040305, end: 20060331

REACTIONS (3)
  - DISEASE RECURRENCE [None]
  - ORAL INFECTION [None]
  - TOOTH INFECTION [None]
